FAERS Safety Report 7833999-1 (Version None)
Quarter: 2011Q4

REPORT INFORMATION
  Report Type: 
  Country: None (occurrence: None)
  Receive Date: 20111024
  Receipt Date: 20111013
  Transmission Date: 20120403
  Serious: Yes (Death, Other)
  Sender: FDA-Public Use
  Company Number: JP-JNJFOC-20111000320

PATIENT
  Age: 9 Decade
  Sex: Male

DRUGS (4)
  1. ISONIAZID [Suspect]
     Indication: PULMONARY TUBERCULOSIS
     Route: 065
  2. RIFADIN [Suspect]
     Indication: PULMONARY TUBERCULOSIS
     Route: 065
  3. ETHAMBUTOL HYDROCHLORIDE [Concomitant]
     Route: 065
  4. LEVOFLOXACIN [Suspect]
     Indication: PULMONARY TUBERCULOSIS
     Route: 065

REACTIONS (2)
  - LIVER DISORDER [None]
  - RENAL DISORDER [None]
